FAERS Safety Report 17828035 (Version 1)
Quarter: 2020Q2

REPORT INFORMATION
  Report Type: Report from Study
  Country: GB (occurrence: GB)
  Receive Date: 20200527
  Receipt Date: 20200527
  Transmission Date: 20200714
  Serious: Yes (Other)
  Sender: FDA-Public Use
  Company Number: NVSC2020GB145570

PATIENT
  Sex: Female

DRUGS (2)
  1. COSENTYX [Suspect]
     Active Substance: SECUKINUMAB
     Indication: SPONDYLOARTHROPATHY
     Dosage: 150 MG  (AS DIRECTED) (WEEK 0, 1, 2, 3 AND 4, AFTER 150 MG MONTHLY) (PEN)
     Route: 065
     Dates: start: 20200512
  2. COSENTYX [Suspect]
     Active Substance: SECUKINUMAB
     Indication: SERONEGATIVE ARTHRITIS

REACTIONS (2)
  - Product use in unapproved indication [Unknown]
  - Nephrolithiasis [Unknown]
